FAERS Safety Report 10727652 (Version 1)
Quarter: 2015Q1

REPORT INFORMATION
  Report Type: Spontaneous
  Country: CH (occurrence: CH)
  Receive Date: 20150121
  Receipt Date: 20150121
  Transmission Date: 20150721
  Serious: Yes (Life-Threatening, Hospitalization, Other)
  Sender: FDA-Public Use
  Company Number: CH-BAYER-2015-005753

PATIENT
  Age: 81 Year
  Sex: Female

DRUGS (11)
  1. BELOC [Concomitant]
     Active Substance: METOPROLOL TARTRATE
  2. HEPARIN [Concomitant]
     Active Substance: HEPARIN SODIUM
  3. ULTRAVIST [Suspect]
     Active Substance: IOPROMIDE
     Indication: DIAGNOSTIC PROCEDURE
     Dosage: 1 DF, ONCE
     Route: 051
     Dates: start: 20141209, end: 20141209
  4. INVANZ [Concomitant]
     Active Substance: ERTAPENEM SODIUM
  5. TOREM [Concomitant]
     Active Substance: TORSEMIDE
  6. LOSARTAN [Concomitant]
     Active Substance: LOSARTAN
  7. PANTOZOL [Concomitant]
     Active Substance: PANTOPRAZOLE SODIUM
  8. DAFALGAN [Concomitant]
     Active Substance: ACETAMINOPHEN
  9. ZINK VERLA [Concomitant]
  10. DOSPIR [Concomitant]
  11. ELTROXIN [Concomitant]
     Active Substance: LEVOTHYROXINE

REACTIONS (4)
  - Resuscitation [Recovered/Resolved]
  - Pneumothorax [Recovered/Resolved]
  - Anaphylactic shock [Recovered/Resolved]
  - Cardiac arrest [Recovered/Resolved]

NARRATIVE: CASE EVENT DATE: 201412
